FAERS Safety Report 9325888 (Version 1)
Quarter: 2013Q2

REPORT INFORMATION
  Report Type: Spontaneous
  Country: US (occurrence: US)
  Receive Date: 20130604
  Receipt Date: 20130604
  Transmission Date: 20140414
  Serious: Yes (Other)
  Sender: FDA-Public Use
  Company Number: US-JNJFOC-20110803311

PATIENT
  Sex: Male

DRUGS (4)
  1. LEVAQUIN [Suspect]
     Indication: SEXUALLY TRANSMITTED DISEASE
     Route: 048
  2. LEVAQUIN [Suspect]
     Indication: SEXUALLY TRANSMITTED DISEASE
     Route: 048
  3. LEVAQUIN [Suspect]
     Indication: BACTERIAL INFECTION
     Route: 048
  4. LEVAQUIN [Suspect]
     Indication: BACTERIAL INFECTION
     Route: 048

REACTIONS (4)
  - Tendon rupture [Unknown]
  - Tenosynovitis stenosans [Unknown]
  - Tendon rupture [Unknown]
  - Tendon disorder [Unknown]
